FAERS Safety Report 7455758-4 (Version None)
Quarter: 2011Q2

REPORT INFORMATION
  Report Type: 
  Country: None (occurrence: None)
  Receive Date: 20110503
  Receipt Date: 20110125
  Transmission Date: 20111010
  Serious: Yes (Death, Other)
  Sender: FDA-Public Use
  Company Number: PHHY2011NO05460

PATIENT
  Age: 40 Year
  Sex: Male

DRUGS (7)
  1. SORAFENIB [Concomitant]
     Indication: METASTASES TO LUNG
     Dosage: 400 MG, BID
     Route: 065
  2. INTERFERON ALFA-2A [Concomitant]
     Dosage: 9 MIU, QW3
  3. EVEROLIMUS [Suspect]
     Dates: start: 20090701
  4. SUTENT [Suspect]
     Indication: METASTASES TO LUNG
     Dosage: 50 MG, QD 4 WEEKS ON /2 WEEKS OFF
     Route: 065
  5. AVASTIN [Concomitant]
     Indication: METASTASES TO LUNG
     Dosage: 10 MG/KG, UNK
     Route: 065
  6. EVEROLIMUS [Suspect]
     Indication: METASTASES TO LUNG
     Dosage: 10 MG, QD
  7. RADIATION THERAPY [Concomitant]

REACTIONS (12)
  - COUGH [None]
  - SLEEP DISORDER [None]
  - PYREXIA [None]
  - BRONCHOSPASM [None]
  - PNEUMONITIS [None]
  - ULCER [None]
  - OESOPHAGITIS [None]
  - PNEUMONIA [None]
  - DYSPNOEA [None]
  - HAEMOPTYSIS [None]
  - ATELECTASIS [None]
  - HEADACHE [None]
